FAERS Safety Report 9460643 (Version 1)
Quarter: 2013Q3

REPORT INFORMATION
  Report Type: Spontaneous
  Country: GB (occurrence: GB)
  Receive Date: 20130815
  Receipt Date: 20130815
  Transmission Date: 20140515
  Serious: Yes (Other)
  Sender: FDA-Public Use
  Company Number: PHFR2013GB004694

PATIENT
  Sex: Female

DRUGS (2)
  1. IMATINIB [Suspect]
     Dosage: UNK UKN, UNK
  2. SPRYCEL//DASATINIB [Suspect]
     Dosage: UNK UKN, UNK

REACTIONS (1)
  - Myelocytosis [Unknown]
